FAERS Safety Report 15164335 (Version 1)
Quarter: 2018Q3

REPORT INFORMATION
  Report Type: Spontaneous
  Country: FR (occurrence: FR)
  Receive Date: 20180719
  Receipt Date: 20180719
  Transmission Date: 20181010
  Serious: Yes (Other)
  Sender: FDA-Public Use
  Company Number: FR-ASPEN-GLO2018FR006769

PATIENT
  Sex: Male
  Weight: 80 kg

DRUGS (2)
  1. HEPARIN [Suspect]
     Active Substance: HEPARIN SODIUM
     Indication: PRODUCT USED FOR UNKNOWN INDICATION
     Route: 065
  2. ORGARAN [Suspect]
     Active Substance: DANAPAROID SODIUM
     Indication: HEPARIN-INDUCED THROMBOCYTOPENIA
     Dosage: 200 UNITS/ HOUR (THE PRODUCT WAS GIVEN AS TREATMENT (NOT AS A BOLUS BUT ADMINISTERED AT A RATE OF 19
     Route: 065

REACTIONS (2)
  - Cerebral thrombosis [Unknown]
  - Cerebrovascular accident [Unknown]
